FAERS Safety Report 17360571 (Version 1)
Quarter: 2020Q1

REPORT INFORMATION
  Report Type: Spontaneous
  Country: US (occurrence: US)
  Receive Date: 20200131
  Receipt Date: 20200131
  Transmission Date: 20200409
  Serious: Yes (Hospitalization)
  Sender: FDA-Public Use
  Company Number: None

PATIENT
  Age: 66 Year
  Sex: Female
  Weight: 77.5 kg

DRUGS (2)
  1. IPILIMUMAB [Suspect]
     Active Substance: IPILIMUMAB
     Indication: GLIOBLASTOMA MULTIFORME
     Dosage: ?          OTHER FREQUENCY:EVERY 3 WEEKS;?
     Route: 042
     Dates: start: 20190114, end: 20190318
  2. NIVOLUMAB [Suspect]
     Active Substance: NIVOLUMAB
     Indication: GLIOBLASTOMA MULTIFORME
     Dosage: ?          OTHER FREQUENCY:Q 3WKS THEN 2WKS;?
     Dates: start: 20190114, end: 20190422

REACTIONS (14)
  - Ketonuria [None]
  - Metabolic acidosis [None]
  - Fall [None]
  - Feeding disorder [None]
  - Streptococcus test positive [None]
  - Neurotoxicity [None]
  - Tendon injury [None]
  - Hypotension [None]
  - Pelvic pain [None]
  - Nausea [None]
  - Seizure [None]
  - Tachycardia [None]
  - Muscular weakness [None]
  - Musculoskeletal pain [None]

NARRATIVE: CASE EVENT DATE: 20190501
